FAERS Safety Report 6593857-X (Version None)
Quarter: 2010Q1

REPORT INFORMATION
  Report Type: 
  Country: None (occurrence: None)
  Receive Date: 20100222
  Receipt Date: 20100215
  Transmission Date: 20100710
  Serious: Yes (Hospitalization)
  Sender: FDA-Public Use
  Company Number: FR-JNJFOC-20100207791

PATIENT
  Age: 9 Year
  Sex: Male
  Weight: 33.4 kg

DRUGS (3)
  1. RISPERDAL [Suspect]
     Indication: ABNORMAL BEHAVIOUR
     Route: 048
  2. RISPERDAL [Suspect]
     Route: 048
  3. RISPERDAL [Suspect]
     Route: 048

REACTIONS (4)
  - CONSTIPATION [None]
  - GASTROENTERITIS [None]
  - GASTROINTESTINAL DISORDER [None]
  - PERIPHERAL COLDNESS [None]
